FAERS Safety Report 5091876-6 (Version None)
Quarter: 2006Q3

REPORT INFORMATION
  Report Type: 
  Country: None (occurrence: None)
  Receive Date: 20060825
  Receipt Date: 20060809
  Transmission Date: 20061208
  Serious: Yes (Other)
  Sender: FDA-Public Use
  Company Number: 111964ISR

PATIENT

DRUGS (1)
  1. PACLITAXEL [Suspect]
     Indication: LUNG NEOPLASM MALIGNANT

REACTIONS (5)
  - DRUG TOXICITY [None]
  - ENCEPHALOPATHY [None]
  - HALLUCINATION [None]
  - INFUSION RELATED REACTION [None]
  - REACTION TO DRUG EXCIPIENTS [None]
